FAERS Safety Report 7324701-0 (Version None)
Quarter: 2011Q1

REPORT INFORMATION
  Report Type: 
  Country: None (occurrence: None)
  Receive Date: 20110301
  Receipt Date: 20110222
  Transmission Date: 20110831
  Serious: Yes (Hospitalization)
  Sender: FDA-Public Use
  Company Number: US-ABBOTT-11P-163-0707219-00

PATIENT
  Sex: Female
  Weight: 90.8 kg

DRUGS (13)
  1. CRESTOR [Concomitant]
     Indication: BLOOD CHOLESTEROL INCREASED
  2. ALDORIL 15 [Concomitant]
     Indication: BLOOD PRESSURE
  3. COUMADIN [Concomitant]
     Indication: PRODUCT USED FOR UNKNOWN INDICATION
     Route: 050
     Dates: start: 20110201, end: 20110201
  4. ASMANEX TWISTHALER [Concomitant]
     Indication: ASTHMA
  5. UNKNOWN MEDICATION [Concomitant]
     Indication: THYROID DISORDER
  6. HUMULIN R [Concomitant]
     Indication: DIABETES MELLITUS
  7. UNKNOWN THYROID MEDICATION [Concomitant]
     Indication: PRODUCT USED FOR UNKNOWN INDICATION
  8. DILTIAZEM [Concomitant]
     Indication: HYPERTENSION
     Dates: start: 20110201
  9. HUMIRA [Suspect]
     Indication: RHEUMATOID ARTHRITIS
     Dates: start: 20101201, end: 20110210
  10. ENALAPRIL [Concomitant]
     Indication: HYPERTENSION
  11. LANTUS [Concomitant]
     Indication: DIABETES MELLITUS
  12. ATENOLOL [Concomitant]
     Indication: HYPERTENSION
     Dates: start: 20080201, end: 20110201
  13. METFORMIN [Concomitant]
     Indication: DIABETES MELLITUS

REACTIONS (7)
  - WHEEZING [None]
  - SNEEZING [None]
  - ASTHMA [None]
  - COUGH [None]
  - BLOOD PRESSURE INCREASED [None]
  - DYSPNOEA [None]
  - INFLUENZA LIKE ILLNESS [None]
